FAERS Safety Report 5711296-8 (Version None)
Quarter: 2008Q2

REPORT INFORMATION
  Report Type: 
  Country: None (occurrence: None)
  Receive Date: 20080415
  Receipt Date: 20080403
  Transmission Date: 20081010
  Serious: Yes (Other)
  Sender: FDA-Public Use
  Company Number: CIP08000115

PATIENT
  Age: 82 Year
  Sex: Female

DRUGS (11)
  1. ACTONEL WITH CALCIUM (COPACKAGED) [Suspect]
     Dosage: 1 TABLET, CYCLIC DAILY, ORAL
     Route: 048
     Dates: start: 20061001
  2. VITAMIN D (COLECALCIFEROL) [Concomitant]
  3. BION TEARS (DEXTRIN) [Concomitant]
  4. SPIRIVA [Concomitant]
  5. ALDACTONE [Concomitant]
  6. LASIX [Concomitant]
  7. ASPIRIN [Concomitant]
  8. TOPROL-XL [Concomitant]
  9. NITROGLYCERIN [Concomitant]
  10. METAMUCIL (PLANTAGO OVATA) [Concomitant]
  11. ENDEP [Concomitant]

REACTIONS (5)
  - ABDOMINAL PAIN [None]
  - CARDIOVASCULAR DISORDER [None]
  - CORONARY ARTERY BYPASS [None]
  - HYPERCALCAEMIA [None]
  - RENAL DISORDER [None]
